FAERS Safety Report 7399783-0 (Version None)
Quarter: 2011Q2

REPORT INFORMATION
  Report Type: 
  Country: None (occurrence: None)
  Receive Date: 20110407
  Receipt Date: 20110323
  Transmission Date: 20111010
  Serious: Yes (Hospitalization)
  Sender: FDA-Public Use
  Company Number: JP-JNJFOC-20101207610

PATIENT
  Age: 75 Year
  Sex: Male

DRUGS (9)
  1. REMICADE [Suspect]
     Dosage: 6TH DOSE
     Route: 042
  2. REMICADE [Suspect]
     Dosage: 7TH DOSE
     Route: 042
  3. RHEUMATREX [Concomitant]
     Indication: RHEUMATOID ARTHRITIS
     Route: 048
  4. REMICADE [Suspect]
     Indication: RHEUMATOID ARTHRITIS
     Dosage: 4TH DOSE
     Route: 042
  5. REMICADE [Suspect]
     Dosage: 2ND DOSE
     Route: 042
  6. REMICADE [Suspect]
     Dosage: 3RD DOSE
     Route: 042
  7. REMICADE [Suspect]
     Dosage: 5TH DOSE
     Route: 042
  8. PREDONINE [Concomitant]
     Indication: RHEUMATOID ARTHRITIS
     Route: 048
  9. REMICADE [Suspect]
     Dosage: 1ST DOSE
     Route: 042

REACTIONS (2)
  - THERAPEUTIC RESPONSE DECREASED [None]
  - B-CELL LYMPHOMA [None]
